FAERS Safety Report 7503838-7 (Version None)
Quarter: 2011Q2

REPORT INFORMATION
  Report Type: 
  Country: None (occurrence: None)
  Receive Date: 20110401
  Receipt Date: 20100208
  Transmission Date: 20111010
  Serious: Yes (Other)
  Sender: FDA-Public Use
  Company Number: 223551USA

PATIENT
  Sex: Female

DRUGS (1)
  1. TAMOXIFEN CITRATE [Suspect]
     Indication: NEOPLASM MALIGNANT
     Dosage: ORAL
     Route: 048

REACTIONS (3)
  - DRUG INEFFECTIVE [None]
  - NEOPLASM MALIGNANT [None]
  - NEOPLASM RECURRENCE [None]
